FAERS Safety Report 4720480-1 (Version None)
Quarter: 2005Q3

REPORT INFORMATION
  Report Type: 
  Country: None (occurrence: None)
  Receive Date: 20050721
  Receipt Date: 20040819
  Transmission Date: 20060218
  Serious: No
  Sender: FDA-Public Use
  Company Number: US-BRISTOL-MYERS SQUIBB COMPANY-12676946

PATIENT
  Age: 63 Year
  Sex: Female
  Weight: 61 kg

DRUGS (4)
  1. GLUCOVANCE [Suspect]
     Indication: DIABETES MELLITUS
     Dosage: DURATION OF THERAPY:  1 1/2 - 2 YEARS.
     Route: 048
  2. LEVOTHROID [Concomitant]
  3. VIOXX [Concomitant]
  4. ASPIRIN [Concomitant]

REACTIONS (1)
  - BLOOD GLUCOSE DECREASED [None]
